FAERS Safety Report 4589415-9 (Version None)
Quarter: 2005Q1

REPORT INFORMATION
  Report Type: 
  Country: None (occurrence: None)
  Receive Date: 20050223
  Receipt Date: 20050210
  Transmission Date: 20050727
  Serious: Yes (Hospitalization)
  Sender: FDA-Public Use
  Company Number: 200510564FR

PATIENT
  Age: 74 Year
  Sex: Female
  Weight: 80 kg

DRUGS (9)
  1. LASILIX RETARD [Suspect]
     Route: 048
  2. DI-ANTALVIC [Suspect]
     Route: 048
     Dates: start: 20050103, end: 20050113
  3. KARDEGIC [Suspect]
     Route: 048
  4. PLAVIX [Suspect]
     Route: 048
  5. KREDEX [Suspect]
     Route: 048
     Dates: start: 20041101
  6. FOZITEC [Suspect]
     Route: 048
  7. PRAVASTATIN [Suspect]
     Route: 048
  8. NOVONORM [Suspect]
     Route: 048
  9. INSULATARD [Suspect]

REACTIONS (3)
  - ALANINE AMINOTRANSFERASE INCREASED [None]
  - ASPARTATE AMINOTRANSFERASE INCREASED [None]
  - GAMMA-GLUTAMYLTRANSFERASE INCREASED [None]
